FAERS Safety Report 9637743 (Version 4)
Quarter: 2013Q4

REPORT INFORMATION
  Report Type: Report from Study
  Country: US (occurrence: US)
  Receive Date: 20131022
  Receipt Date: 20131227
  Transmission Date: 20140711
  Serious: Yes (Hospitalization)
  Sender: FDA-Public Use
  Company Number: US-ABBVIE-13P-163-1150927-00

PATIENT
  Age: 78 Year
  Sex: Male
  Weight: 89.4 kg

DRUGS (13)
  1. HUMIRA [Suspect]
     Indication: COLITIS ULCERATIVE
     Dates: start: 20130821, end: 20130821
  2. HUMIRA [Suspect]
     Dates: start: 20130904, end: 20130904
  3. HUMIRA [Suspect]
     Dates: end: 201310
  4. LIALDA [Concomitant]
     Indication: COLITIS ULCERATIVE
     Dates: start: 201009
  5. FLOMAX [Concomitant]
     Indication: PRODUCT USED FOR UNKNOWN INDICATION
  6. WARFARIN [Concomitant]
     Indication: ANTICOAGULANT THERAPY
  7. WARFARIN [Concomitant]
  8. DIGOXEN [Concomitant]
     Indication: PRODUCT USED FOR UNKNOWN INDICATION
  9. SPIRONOLACTONE [Concomitant]
     Indication: CARDIAC DISORDER
  10. FUROSEMID [Concomitant]
     Indication: DIURETIC THERAPY
     Dosage: 1 1/2
  11. PROBIOTICS NOS [Concomitant]
     Indication: PRODUCT USED FOR UNKNOWN INDICATION
     Dosage: DAILY
  12. POTASSIUM [Concomitant]
     Indication: PRODUCT USED FOR UNKNOWN INDICATION
     Dosage: DAILY
  13. IRON [Concomitant]
     Indication: PRODUCT USED FOR UNKNOWN INDICATION

REACTIONS (8)
  - Hernia obstructive [Recovering/Resolving]
  - Injection site pain [Not Recovered/Not Resolved]
  - Drug ineffective [Unknown]
  - Diarrhoea [Unknown]
  - Decreased appetite [Unknown]
  - Weight decreased [Unknown]
  - Rash macular [Unknown]
  - Small intestinal obstruction [Unknown]
